FAERS Safety Report 15209536 (Version 1)
Quarter: 2018Q3

REPORT INFORMATION
  Report Type: Spontaneous
  Country: US (occurrence: US)
  Receive Date: 20180727
  Receipt Date: 20180727
  Transmission Date: 20181010
  Serious: Yes (Other)
  Sender: FDA-Public Use
  Company Number: US-PRINSTON PHARMACEUTICAL INC.-2018PRN00383

PATIENT
  Sex: Female
  Weight: 79.37 kg

DRUGS (3)
  1. CARDIA XT [Concomitant]
     Dosage: UNK
  2. VALSARTAN AND HYDROCHLOROTHIAZIDE [Suspect]
     Active Substance: HYDROCHLOROTHIAZIDE\VALSARTAN
     Indication: PROTEINURIA
     Dosage: 1 TABLETS, 1X/DAY
     Route: 048
     Dates: start: 201410
  3. TRAMADOL. [Concomitant]
     Active Substance: TRAMADOL
     Dosage: 50 MG, AS NEEDED

REACTIONS (8)
  - Eye haemorrhage [Not Recovered/Not Resolved]
  - Throat clearing [Not Recovered/Not Resolved]
  - Pruritus [Unknown]
  - Blood pressure increased [Recovered/Resolved]
  - Choking [Not Recovered/Not Resolved]
  - Sensation of foreign body [Not Recovered/Not Resolved]
  - Viral infection [Recovered/Resolved]
  - Cough [Not Recovered/Not Resolved]

NARRATIVE: CASE EVENT DATE: 2017
